FAERS Safety Report 12202427 (Version 2)
Quarter: 2016Q1

REPORT INFORMATION
  Report Type: Spontaneous
  Country: US (occurrence: US)
  Receive Date: 20160322
  Receipt Date: 20160330
  Transmission Date: 20160526
  Serious: Yes (Other)
  Sender: FDA-Public Use
  Company Number: US-MDT-ADR-2016-00545

PATIENT
  Age: 53 Year
  Sex: Female

DRUGS (4)
  1. MORPHINE DRUG, UNKNOWN [Suspect]
     Active Substance: MORPHINE
     Dosage: 6.216 MG/DAY
     Route: 037
     Dates: start: 20140107
  2. BACLOFEN, UNKNOWN [Suspect]
     Active Substance: BACLOFEN
     Dosage: 15.541 MCG/DAY
     Route: 037
     Dates: start: 20140107
  3. LYRICA [Suspect]
     Active Substance: PREGABALIN
     Route: 065
  4. BACLOFEN. [Suspect]
     Active Substance: BACLOFEN
     Route: 065

REACTIONS (5)
  - Inflammation [Unknown]
  - Fall [Unknown]
  - Burning sensation [Unknown]
  - Paraesthesia [Unknown]
  - C-reactive protein increased [Unknown]

NARRATIVE: CASE EVENT DATE: 201601
